FAERS Safety Report 12808132 (Version 5)
Quarter: 2017Q2

REPORT INFORMATION
  Report Type: Spontaneous
  Country: US (occurrence: US)
  Receive Date: 20161004
  Receipt Date: 20170627
  Transmission Date: 20170830
  Serious: Yes (Other)
  Sender: FDA-Public Use
  Company Number: US-PFIZER INC-2016460329

PATIENT
  Age: 81 Year
  Sex: Female
  Weight: 93.44 kg

DRUGS (7)
  1. LYRICA [Suspect]
     Active Substance: PREGABALIN
     Indication: PAIN
     Dosage: 4X/DAY
     Route: 048
     Dates: start: 2013
  2. LYRICA [Suspect]
     Active Substance: PREGABALIN
     Indication: PAIN IN EXTREMITY
  3. LYRICA [Suspect]
     Active Substance: PREGABALIN
     Indication: LUMBAR SPINAL STENOSIS
     Dosage: 75 MG, 3X/DAY
     Route: 048
  4. DOXEPIN [Concomitant]
     Active Substance: DOXEPIN
     Indication: SLEEP DISORDER
     Dosage: ONCE AT NIGHT
  5. PANTOPRAZOLE [Concomitant]
     Active Substance: PANTOPRAZOLE
     Indication: FLATULENCE
     Dosage: 40 MG, 2X/DAY
     Route: 048
     Dates: start: 2016
  6. PANTOPRAZOLE [Concomitant]
     Active Substance: PANTOPRAZOLE
     Indication: HIATUS HERNIA
  7. LYRICA [Suspect]
     Active Substance: PREGABALIN
     Indication: ARTHRITIS
     Dosage: 50 MG, 3X/DAY
     Route: 048
     Dates: start: 20130304

REACTIONS (11)
  - Pain in extremity [Recovering/Resolving]
  - Fall [Unknown]
  - Drug dispensing error [Unknown]
  - Pain [Unknown]
  - Drug dose omission [Recovered/Resolved]
  - Fluid retention [Recovering/Resolving]
  - Intentional product use issue [Unknown]
  - Musculoskeletal stiffness [Recovering/Resolving]
  - Hypoaesthesia [Unknown]
  - Stress [Unknown]
  - Anger [Recovering/Resolving]

NARRATIVE: CASE EVENT DATE: 2016
